FAERS Safety Report 6109287-0 (Version None)
Quarter: 2009Q1

REPORT INFORMATION
  Report Type: 
  Country: None (occurrence: None)
  Receive Date: 20090306
  Receipt Date: 20090227
  Transmission Date: 20090719
  Serious: Yes (Death)
  Sender: FDA-Public Use
  Company Number: 2009-192313-NL

PATIENT
  Age: 77 Year
  Sex: Female

DRUGS (9)
  1. MIRTAZAPINE [Suspect]
     Dosage: ORAL
     Route: 048
     Dates: start: 20080218, end: 20080327
  2. HALOPERIDOL [Suspect]
     Dosage: 2.5 MG/1 MG ORAL
     Route: 048
     Dates: start: 20080307, end: 20080312
  3. HALOPERIDOL [Suspect]
     Dosage: 2.5 MG/1 MG ORAL
     Route: 048
     Dates: start: 20080313, end: 20080327
  4. CARBAMAZEPINE [Suspect]
     Dosage: 50 MG ORAL
     Route: 048
     Dates: start: 20080314, end: 20080327
  5. QUETIAPINE FUMARATE [Suspect]
     Dosage: 25 MG/50 MG/100 MG ORAL
     Route: 048
     Dates: start: 20080225, end: 20080305
  6. QUETIAPINE FUMARATE [Suspect]
     Dosage: 25 MG/50 MG/100 MG ORAL
     Route: 048
     Dates: start: 20080306, end: 20080316
  7. QUETIAPINE FUMARATE [Suspect]
     Dosage: 25 MG/50 MG/100 MG ORAL
     Route: 048
     Dates: start: 20080317, end: 20080327
  8. LEVOTHYROXINE SODIUM [Concomitant]
  9. METOPROLOL TARTRATE [Concomitant]

REACTIONS (8)
  - ANXIETY [None]
  - CARDIAC DISORDER [None]
  - CARDIOTOXICITY [None]
  - CEREBRAL DISORDER [None]
  - CONVULSION [None]
  - MYOCARDIAL INFARCTION [None]
  - RESTLESSNESS [None]
  - VENTRICULAR FIBRILLATION [None]
